FAERS Safety Report 18508329 (Version 4)
Quarter: 2021Q4

REPORT INFORMATION
  Report Type: Report from Study
  Country: US (occurrence: US)
  Receive Date: 20201116
  Receipt Date: 20211119
  Transmission Date: 20220303
  Serious: Yes (Hospitalization, Other)
  Sender: FDA-Public Use
  Company Number: US-JAZZ-2020-US-014756

PATIENT
  Sex: Female

DRUGS (30)
  1. XYREM [Suspect]
     Active Substance: SODIUM OXYBATE
     Indication: Narcolepsy
     Dosage: 2.25 GRAM, BID
     Route: 048
     Dates: start: 200510, end: 200511
  2. XYREM [Suspect]
     Active Substance: SODIUM OXYBATE
     Dosage: 3.5 GRAM, BID
     Route: 048
     Dates: start: 200511, end: 200605
  3. XYREM [Suspect]
     Active Substance: SODIUM OXYBATE
     Dosage: 3.5 GRAM, BID
     Route: 048
     Dates: start: 201505, end: 201506
  4. XYREM [Suspect]
     Active Substance: SODIUM OXYBATE
     Dosage: 4.5 GRAM, BID
     Route: 048
     Dates: start: 201506
  5. CELEBREX [Concomitant]
     Active Substance: CELECOXIB
  6. DILAUDID [Concomitant]
     Active Substance: HYDROMORPHONE HYDROCHLORIDE
  7. TAMOXIFEN [Concomitant]
     Active Substance: TAMOXIFEN
  8. AMLODIPINE BESYLATE [Concomitant]
     Active Substance: AMLODIPINE BESYLATE
  9. BUSPIRONE HCL [Concomitant]
     Active Substance: BUSPIRONE HYDROCHLORIDE
  10. CHLORTHALIDONE [Concomitant]
     Active Substance: CHLORTHALIDONE
  11. EDARBI [Concomitant]
     Active Substance: AZILSARTAN KAMEDOXOMIL
  12. SYMPROIC [Concomitant]
     Active Substance: NALDEMEDINE
  13. SULFASALAZINE [Concomitant]
     Active Substance: SULFASALAZINE
  14. MONTELUKAST SODIUM [Concomitant]
     Active Substance: MONTELUKAST SODIUM
  15. CETIRIZINE HCL [Concomitant]
     Active Substance: CETIRIZINE HYDROCHLORIDE
  16. MORPHINE SULFATE [Concomitant]
     Active Substance: MORPHINE SULFATE
  17. AMITIZA [Concomitant]
     Active Substance: LUBIPROSTONE
  18. ANTIFUNGAL [TOLNAFTATE] [Concomitant]
  19. DIFLUCAN [Concomitant]
     Active Substance: FLUCONAZOLE
  20. MOVANTIK [Concomitant]
     Active Substance: NALOXEGOL OXALATE
  21. PLAQUENIL [Concomitant]
     Active Substance: HYDROXYCHLOROQUINE SULFATE
  22. ABILIFY [Concomitant]
     Active Substance: ARIPIPRAZOLE
  23. BENICAR HCT [Concomitant]
     Active Substance: HYDROCHLOROTHIAZIDE\OLMESARTAN MEDOXOMIL
  24. KETOCONAZOLE [Concomitant]
     Active Substance: KETOCONAZOLE
  25. KLONOPIN [Concomitant]
     Active Substance: CLONAZEPAM
  26. MELOXICAM [Concomitant]
     Active Substance: MELOXICAM
  27. METHOTREXATE [Concomitant]
     Active Substance: METHOTREXATE
  28. NEXIUM [Concomitant]
     Active Substance: ESOMEPRAZOLE MAGNESIUM
  29. LABETALOL HYDROCHLORIDE [Concomitant]
     Active Substance: LABETALOL HYDROCHLORIDE
  30. LEFLUNOMIDE [Concomitant]
     Active Substance: LEFLUNOMIDE

REACTIONS (3)
  - Arthropathy [Unknown]
  - Gastrooesophageal reflux disease [Unknown]
  - Therapy interrupted [Unknown]
